FAERS Safety Report 12637497 (Version 6)
Quarter: 2017Q2

REPORT INFORMATION
  Report Type: Report from Study
  Country: JP (occurrence: JP)
  Receive Date: 20160809
  Receipt Date: 20170525
  Transmission Date: 20170830
  Serious: Yes (Death, Hospitalization)
  Sender: FDA-Public Use
  Company Number: JP-EISAI MEDICAL RESEARCH-EC-2016-019232

PATIENT
  Sex: Female
  Weight: 59 kg

DRUGS (16)
  1. LENVIMA [Suspect]
     Active Substance: LENVATINIB
     Route: 048
     Dates: start: 20151026, end: 20151115
  2. LENVIMA [Suspect]
     Active Substance: LENVATINIB
     Route: 048
     Dates: start: 20160402, end: 20160501
  3. LENVIMA [Suspect]
     Active Substance: LENVATINIB
     Route: 048
     Dates: start: 20160324, end: 20160327
  4. DRENISON [Concomitant]
     Active Substance: FLURANDRENOLIDE
  5. LENVIMA [Suspect]
     Active Substance: LENVATINIB
     Route: 048
     Dates: start: 20151120, end: 20160207
  6. LENVIMA [Suspect]
     Active Substance: LENVATINIB
     Route: 048
     Dates: start: 20160502, end: 20160513
  7. LEVOTHYROXINE SODIUM HYDRATE [Concomitant]
     Active Substance: LEVOTHYROXINE SODIUM
  8. AMLOPDIPINE [Concomitant]
  9. LENVIMA [Suspect]
     Active Substance: LENVATINIB
     Route: 048
     Dates: start: 20160514, end: 20160517
  10. FLUITRAN [Concomitant]
     Active Substance: TRICHLORMETHIAZIDE
  11. DERMOVATE [Concomitant]
     Active Substance: CLOBETASOL
  12. LENVIMA [Suspect]
     Active Substance: LENVATINIB
     Indication: NEOPLASM MALIGNANT
     Route: 048
     Dates: start: 20150920, end: 20151025
  13. LENVIMA [Suspect]
     Active Substance: LENVATINIB
     Route: 048
     Dates: start: 20160328, end: 20160401
  14. LENVIMA [Suspect]
     Active Substance: LENVATINIB
     Route: 048
     Dates: start: 20160210, end: 20160323
  15. HIRUDOID [Concomitant]
     Active Substance: GLYCOSAMINOGLYCANS
  16. MICARDIS [Concomitant]
     Active Substance: TELMISARTAN

REACTIONS (5)
  - Malignant neoplasm progression [Fatal]
  - Hypocalcaemia [Recovering/Resolving]
  - Oesophageal fistula [Not Recovered/Not Resolved]
  - Impaired healing [Not Recovered/Not Resolved]
  - Tracheal fistula [Not Recovered/Not Resolved]

NARRATIVE: CASE EVENT DATE: 20150928
